FAERS Safety Report 8934514 (Version 1)
Quarter: 2012Q4

REPORT INFORMATION
  Report Type: 
  Country: US (occurrence: US)
  Receive Date: 20121129
  Receipt Date: 20121129
  Transmission Date: 20130627
  Serious: No
  Sender: FDA-Public Use
  Company Number: US-GLAXOSMITHKLINE-A0966061A

PATIENT
  Age: 8 Year
  Sex: Male

DRUGS (2)
  1. FLOVENT [Suspect]
     Indication: ASTHMA
     Dosage: 1PUFF Twice per day
     Route: 055
     Dates: start: 20120204, end: 20120212
  2. NO CONCURRENT MEDICATION [Concomitant]

REACTIONS (3)
  - Dry mouth [Recovering/Resolving]
  - Abdominal pain upper [Unknown]
  - Psychomotor hyperactivity [Unknown]
